FAERS Safety Report 9516416 (Version 3)
Quarter: 2013Q4

REPORT INFORMATION
  Report Type: Spontaneous
  Country: US (occurrence: US)
  Receive Date: 20130911
  Receipt Date: 20131112
  Transmission Date: 20140711
  Serious: Yes (Other)
  Sender: FDA-Public Use
  Company Number: US-PFIZER INC-2013257739

PATIENT
  Age: 61 Year
  Sex: Male

DRUGS (3)
  1. INLYTA [Suspect]
     Indication: RENAL CANCER
     Dosage: 1 DF, 1X/DAY (1 PILL EVERY MORNING AND ONE PILL EVERY OTHER NIGHT)
     Dates: start: 20130416
  2. INLYTA [Suspect]
     Dosage: 1 DF, ALTERNATE DAY (1 PILL EVERY MORNING AND ONE PILL EVERY OTHER NIGHT)
     Dates: start: 20130416
  3. INLYTA [Suspect]
     Dosage: 5 MG, 2X/DAY (ONE PILL TWICE DAILY)
     Dates: start: 20131004

REACTIONS (2)
  - Nephrolithiasis [Recovered/Resolved]
  - Diarrhoea [Recovered/Resolved]
